FAERS Safety Report 7521217-3 (Version None)
Quarter: 2011Q2

REPORT INFORMATION
  Report Type: 
  Country: None (occurrence: None)
  Receive Date: 20110603
  Receipt Date: 20101210
  Transmission Date: 20111010
  Serious: Yes (Other)
  Sender: FDA-Public Use
  Company Number: CN-BAYER-2010-003232

PATIENT
  Age: 30 Year
  Sex: Female

DRUGS (1)
  1. AVELOX [Suspect]
     Indication: INFECTION PROPHYLAXIS
     Dosage: 400 MG, QD
     Dates: start: 20101206, end: 20101206

REACTIONS (6)
  - EYE SWELLING [None]
  - VOMITING [None]
  - SWELLING FACE [None]
  - DYSARTHRIA [None]
  - HYPERSENSITIVITY [None]
  - DYSPNOEA [None]
